FAERS Safety Report 5759204-8 (Version None)
Quarter: 2008Q2

REPORT INFORMATION
  Report Type: 
  Country: None (occurrence: None)
  Receive Date: 20080604
  Receipt Date: 20080520
  Transmission Date: 20081010
  Serious: Yes (Life-Threatening, Hospitalization)
  Sender: FDA-Public Use
  Company Number: ES-GENENTECH-261811

PATIENT
  Sex: Female
  Weight: 86.5 kg

DRUGS (7)
  1. BEVACIZUMAB [Suspect]
     Indication: RECTAL CANCER
     Dosage: 7.5 MG/KG, Q3W
     Route: 042
     Dates: start: 20071026
  2. BEVACIZUMAB [Suspect]
     Dosage: 5 MG/KG, UNK
     Route: 042
     Dates: end: 20080306
  3. OXALIPLATIN [Suspect]
     Indication: RECTAL CANCER
     Dosage: 130 MG/M2, Q3W
     Route: 042
     Dates: start: 20071026, end: 20080102
  4. CAPECITABINE [Suspect]
     Indication: RECTAL CANCER
     Dosage: 1000 MG/M2, BID
     Route: 048
     Dates: start: 20071026
  5. CAPECITABINE [Suspect]
     Dosage: 825 MG/M2, BID
     Route: 048
     Dates: end: 20080307
  6. RADIOTHERAPY [Concomitant]
     Indication: RECTAL CANCER
     Dosage: 1.8 GY, UNK
  7. METFORMIN HCL [Concomitant]
     Indication: DRUG USE FOR UNKNOWN INDICATION

REACTIONS (3)
  - PERITONITIS [None]
  - SEPTIC SHOCK [None]
  - SUTURE RELATED COMPLICATION [None]
